FAERS Safety Report 6149574-3 (Version None)
Quarter: 2009Q2

REPORT INFORMATION
  Report Type: 
  Country: None (occurrence: None)
  Receive Date: 20090409
  Receipt Date: 20090330
  Transmission Date: 20091009
  Serious: Yes (Hospitalization, Disabling)
  Sender: FDA-Public Use
  Company Number: JP-ASTRAZENECA-2009AP01662

PATIENT
  Age: 76 Year
  Sex: Male
  Weight: 54 kg

DRUGS (11)
  1. IRESSA [Suspect]
     Indication: LUNG ADENOCARCINOMA
     Route: 048
     Dates: start: 20081216, end: 20090223
  2. ZOMETA [Concomitant]
     Route: 041
     Dates: start: 20081216
  3. TAKEPRON [Concomitant]
     Route: 048
     Dates: start: 20081219, end: 20090309
  4. PROMOTIN S [Concomitant]
     Route: 048
     Dates: start: 20081220, end: 20090301
  5. LASIX [Concomitant]
     Route: 048
     Dates: start: 20081222, end: 20090301
  6. HYPEN [Concomitant]
     Route: 048
     Dates: start: 20081223, end: 20090309
  7. RINDERON [Concomitant]
     Route: 048
     Dates: start: 20081224, end: 20090301
  8. MIYA BM [Concomitant]
     Route: 048
     Dates: start: 20081226, end: 20090301
  9. UNKNOWNDRUG [Concomitant]
     Route: 048
     Dates: start: 20090107, end: 20090301
  10. MUCOSTA [Concomitant]
     Route: 048
     Dates: start: 20090115, end: 20090301
  11. SENNARIDE [Concomitant]
     Route: 048
     Dates: start: 20090202, end: 20090301

REACTIONS (2)
  - INTERSTITIAL LUNG DISEASE [None]
  - PNEUMOTHORAX [None]
